FAERS Safety Report 18308151 (Version 1)
Quarter: 2020Q3

REPORT INFORMATION
  Report Type: Spontaneous
  Country: US (occurrence: US)
  Receive Date: 20200924
  Receipt Date: 20200924
  Transmission Date: 20201103
  Serious: Yes (Other)
  Sender: FDA-Public Use
  Company Number: NVSC2020US257029

PATIENT
  Age: 42 Year
  Sex: Male

DRUGS (1)
  1. ADAKVEO [Suspect]
     Active Substance: CRIZANLIZUMAB-TMCA
     Indication: PRODUCT USED FOR UNKNOWN INDICATION
     Dosage: UNK, QMO (INTO BLOODSTREAM VIA VEIN)
     Route: 042
     Dates: start: 202005

REACTIONS (2)
  - Infusion related reaction [Unknown]
  - Abdominal pain [Recovering/Resolving]
